FAERS Safety Report 21645618 (Version 1)
Quarter: 2022Q4

REPORT INFORMATION
  Report Type: Report from Study
  Country: US (occurrence: US)
  Receive Date: 20221126
  Receipt Date: 20221126
  Transmission Date: 20230112
  Serious: No
  Sender: FDA-Public Use
  Company Number: US-ABBVIE-4166070

PATIENT
  Sex: Female

DRUGS (1)
  1. HUMIRA [Suspect]
     Active Substance: ADALIMUMAB
     Indication: Colitis ulcerative
     Dosage: CITRATE FREE
     Route: 058

REACTIONS (10)
  - Device issue [Unknown]
  - Injection site hypersensitivity [Recovering/Resolving]
  - Injection site pain [Unknown]
  - Injection site pruritus [Unknown]
  - Feeling hot [Unknown]
  - Swelling face [Unknown]
  - Erythema [Unknown]
  - Peripheral swelling [Unknown]
  - Lip swelling [Unknown]
  - Lip erythema [Unknown]
